FAERS Safety Report 22596608 (Version 1)
Quarter: 2023Q2

REPORT INFORMATION
  Report Type: Spontaneous
  Country: US (occurrence: None)
  Receive Date: 20230613
  Receipt Date: 20230613
  Transmission Date: 20230721
  Serious: No
  Sender: FDA-Public Use
  Company Number: None

PATIENT
  Sex: Male

DRUGS (27)
  1. FLUOROURACIL [Suspect]
     Active Substance: FLUOROURACIL
     Indication: Colon cancer
     Dosage: OTHER FREQUENCY : OVR 46HRSQ21D;?OVER 46 HRS
     Route: 042
  2. LEUCOVORIN [Suspect]
     Active Substance: LEUCOVORIN
     Dosage: FREQUENCY : MONTHLY;?
     Route: 042
  3. DIPHENHYDRAMINE [Concomitant]
     Active Substance: DIPHENHYDRAMINE
  4. ACLOMETASONE [Concomitant]
  5. AMLODIPINE [Concomitant]
     Active Substance: AMLODIPINE BESYLATE
  6. ARANESP [Concomitant]
     Active Substance: DARBEPOETIN ALFA
  7. ATORVASTATIN [Concomitant]
     Active Substance: ATORVASTATIN
  8. CALCIUM\MAGNESIUM [Concomitant]
     Active Substance: CALCIUM\MAGNESIUM
  9. CLINDAMYCIN [Concomitant]
     Active Substance: CLINDAMYCIN
  10. CLOPIDOGREL [Concomitant]
     Active Substance: CLOPIDOGREL BISULFATE
  11. DILAUDID [Concomitant]
     Active Substance: HYDROMORPHONE HYDROCHLORIDE
  12. DOCUSATE [Concomitant]
     Active Substance: DOCUSATE
  13. FENTANYL [Concomitant]
     Active Substance: FENTANYL
  14. INJECTAFER [Concomitant]
     Active Substance: FERRIC CARBOXYMALTOSE
  15. LACTULOSE [Concomitant]
     Active Substance: LACTULOSE
  16. GABAPENTIN [Concomitant]
     Active Substance: GABAPENTIN
  17. METOPROLOL [Concomitant]
     Active Substance: METOPROLOL
  18. NEUPOGEN, [Concomitant]
  19. PREDNISONE [Concomitant]
     Active Substance: PREDNISONE
  20. PREGABALIN [Concomitant]
     Active Substance: PREGABALIN
  21. RAMIPRIL [Concomitant]
     Active Substance: RAMIPRIL
  22. SENNA [Concomitant]
     Active Substance: SENNA LEAF\SENNOSIDES\SENNOSIDES A AND B
  23. ZARXIO [Concomitant]
     Active Substance: FILGRASTIM-SNDZ
  24. FOSAPREPITANT [Concomitant]
     Active Substance: FOSAPREPITANT
  25. PALONOSETRON [Concomitant]
     Active Substance: PALONOSETRON
  26. IRINOTECAN [Concomitant]
     Active Substance: IRINOTECAN
  27. DEXAMETHASONE [Concomitant]
     Active Substance: DEXAMETHASONE

REACTIONS (1)
  - Disease progression [None]
